FAERS Safety Report 4452780-7 (Version None)
Quarter: 2004Q3

REPORT INFORMATION
  Report Type: 
  Country: None (occurrence: None)
  Receive Date: 20040916
  Receipt Date: 20040906
  Transmission Date: 20050211
  Serious: Yes (Death, Hospitalization, Disabling)
  Sender: FDA-Public Use
  Company Number: 2004EU001086

PATIENT
  Age: 64 Year
  Sex: Female
  Weight: 58 kg

DRUGS (4)
  1. FK506(TACROLIMUS) FORMULATION UNKNOWN [Suspect]
     Indication: RENAL TRANSPLANT
     Dosage: 2.00 MG, ORAL
     Route: 048
     Dates: start: 20040319, end: 20040628
  2. MYCOPHENOLATE MOFETIL (MYCOPHENOLATE MOFETIL) [Suspect]
     Dosage: SEE IMAGE
     Route: 048
     Dates: end: 20040628
  3. MYCOPHENOLATE MOFETIL (MYCOPHENOLATE MOFETIL) [Suspect]
     Dosage: SEE IMAGE
     Route: 048
     Dates: start: 20040319
  4. METHYLPREDNISOLONE [Suspect]
     Dosage: 16.00 MG, ORAL
     Route: 048
     Dates: start: 20040319

REACTIONS (4)
  - BACTERIAL SEPSIS [None]
  - BRONCHOPULMONARY ASPERGILLOSIS [None]
  - HEPATIC CYST INFECTION [None]
  - PNEUMONIA CYTOMEGALOVIRAL [None]
